FAERS Safety Report 12081343 (Version 2)
Quarter: 2016Q1

REPORT INFORMATION
  Report Type: Report from Study
  Country: US (occurrence: US)
  Receive Date: 20160216
  Receipt Date: 20160325
  Transmission Date: 20160526
  Serious: Yes (Hospitalization)
  Sender: FDA-Public Use
  Company Number: US-VERTEX PHARMACEUTICALS-2015-004638

PATIENT
  Sex: Female

DRUGS (8)
  1. CREON [Concomitant]
     Active Substance: PANCRELIPASE AMYLASE\PANCRELIPASE LIPASE\PANCRELIPASE PROTEASE
  2. OMEPRAZOLE. [Concomitant]
     Active Substance: OMEPRAZOLE
  3. ANTIBIOTICS [Concomitant]
     Active Substance: UNSPECIFIED INGREDIENT
     Route: 055
  4. LEVALBUTEROL. [Concomitant]
     Active Substance: LEVALBUTEROL
  5. TRADJENTA [Concomitant]
     Active Substance: LINAGLIPTIN
  6. MUCOLYTICS [Concomitant]
     Active Substance: UNSPECIFIED INGREDIENT
  7. ORKAMBI [Suspect]
     Active Substance: IVACAFTOR\LUMACAFTOR
     Indication: CYSTIC FIBROSIS
     Dosage: 400MG/250MG, BID
     Route: 048
     Dates: start: 201510
  8. CAYSTON [Concomitant]
     Active Substance: AZTREONAM

REACTIONS (2)
  - Dyspnoea exertional [Recovered/Resolved]
  - Feeling hot [Unknown]
